FAERS Safety Report 7022948-4 (Version None)
Quarter: 2010Q3

REPORT INFORMATION
  Report Type: 
  Country: None (occurrence: None)
  Receive Date: 20100930
  Receipt Date: 20100920
  Transmission Date: 20110219
  Serious: Yes (Other)
  Sender: FDA-Public Use
  Company Number: US-PFIZER INC-2010119927

PATIENT
  Sex: Female
  Weight: 61.678 kg

DRUGS (2)
  1. ESTRING [Suspect]
     Indication: OFF LABEL USE
     Dosage: UNK
     Dates: start: 20100910, end: 20100913
  2. ESTRING [Suspect]
     Indication: CYSTOCELE

REACTIONS (8)
  - CONDITION AGGRAVATED [None]
  - GENITAL RASH [None]
  - VAGINAL LESION [None]
  - VAGINAL SWELLING [None]
  - VULVOVAGINAL DISCOMFORT [None]
  - VULVOVAGINAL MYCOTIC INFECTION [None]
  - VULVOVAGINAL PAIN [None]
  - VULVOVAGINAL PRURITUS [None]
